FAERS Safety Report 25983138 (Version 1)
Quarter: 2025Q4

REPORT INFORMATION
  Report Type: Spontaneous
  Country: EU (occurrence: EU)
  Receive Date: 20251031
  Receipt Date: 20251031
  Transmission Date: 20260117
  Serious: Yes (Hospitalization, Other)
  Sender: ASTELLAS
  Company Number: None

PATIENT
  Age: 22 Year
  Sex: Female
  Weight: 47 kg

DRUGS (1)
  1. PROGRAF [Suspect]
     Active Substance: TACROLIMUS
     Indication: Liver transplant
     Dosage: 12 MG/DAY
     Route: 048
     Dates: start: 20250807, end: 20250927

REACTIONS (1)
  - Reversible cerebral vasoconstriction syndrome [Recovering/Resolving]

NARRATIVE: CASE EVENT DATE: 20250927
